FAERS Safety Report 6043012-7 (Version None)
Quarter: 2009Q1

REPORT INFORMATION
  Report Type: 
  Country: None (occurrence: None)
  Receive Date: 20090119
  Receipt Date: 20090115
  Transmission Date: 20090719
  Serious: Yes (Other)
  Sender: FDA-Public Use
  Company Number: GB-ABBOTT-09P-167-0498003-00

PATIENT
  Age: 31 Year
  Sex: Female
  Weight: 73.9 kg

DRUGS (4)
  1. HUMIRA [Suspect]
     Indication: CROHN'S DISEASE
     Dosage: LOADING DOSE ONLY
     Dates: start: 20081223
  2. PENTASA [Concomitant]
     Indication: CROHN'S DISEASE
     Dates: start: 20020101
  3. BUDESONIDE [Concomitant]
     Indication: CROHN'S DISEASE
  4. OMEPRAZOLE [Concomitant]
     Indication: CROHN'S DISEASE

REACTIONS (4)
  - DIZZINESS [None]
  - HYPOAESTHESIA [None]
  - INFUSION SITE INFLAMMATION [None]
  - VISION BLURRED [None]
